FAERS Safety Report 7953958-8 (Version None)
Quarter: 2011Q4

REPORT INFORMATION
  Report Type: 
  Country: None (occurrence: None)
  Receive Date: 20111202
  Receipt Date: 20111121
  Transmission Date: 20120403
  Serious: Yes (Death, Hospitalization)
  Sender: FDA-Public Use
  Company Number: JP-JNJFOC-20080300295

PATIENT
  Sex: Male
  Weight: 59 kg

DRUGS (20)
  1. REMICADE [Suspect]
     Indication: BEHCET'S SYNDROME
     Route: 042
     Dates: start: 20070226
  2. PREDNISOLONE [Concomitant]
     Route: 048
     Dates: start: 20070608, end: 20070610
  3. REMICADE [Suspect]
     Route: 042
     Dates: start: 20070424
  4. REMICADE [Suspect]
     Route: 042
     Dates: start: 20070319
  5. AMLODIPINE [Concomitant]
     Indication: HYPERTENSION
     Route: 048
  6. PREDNISOLONE [Concomitant]
     Route: 048
     Dates: start: 20070614, end: 20070615
  7. PREDNISOLONE [Concomitant]
     Route: 048
     Dates: start: 20070611, end: 20070613
  8. GLUCOBAY [Concomitant]
     Indication: DIABETES MELLITUS
     Route: 048
  9. DORIPENEM MONOHYDRATE [Concomitant]
     Indication: LUNG INFECTION PSEUDOMONAL
     Dates: start: 20080110, end: 20080117
  10. SOLU-MEDROL [Concomitant]
     Indication: BEHCET'S SYNDROME
     Dates: start: 20070718, end: 20070720
  11. PREDNISOLONE [Concomitant]
     Indication: BEHCET'S SYNDROME
     Dosage: INTRAVENOUS
     Route: 048
     Dates: start: 20080101, end: 20080121
  12. NOVO RAPID MIX [Concomitant]
     Indication: DIABETES MELLITUS
  13. NOVOLIN R [Concomitant]
     Indication: DIABETES MELLITUS
  14. REMICADE [Suspect]
     Route: 042
     Dates: start: 20070801
  15. PLETAL [Concomitant]
     Indication: HYPERTENSION
     Route: 048
  16. PREDNISOLONE [Concomitant]
     Route: 048
     Dates: start: 20070721, end: 20070825
  17. MEDROL [Suspect]
     Indication: BEHCET'S SYNDROME
     Dates: start: 20071113, end: 20071231
  18. ATELEC [Concomitant]
     Indication: HYPERTENSION
     Route: 048
  19. OLMESARTAN MEDOXOMIL [Concomitant]
     Indication: HYPERTENSION
     Route: 048
  20. ANTITUBERCLUOSIS DRUGS [Concomitant]
     Indication: TUBERCULOSIS
     Dates: start: 20080108

REACTIONS (3)
  - LUNG INFECTION PSEUDOMONAL [None]
  - MULTI-ORGAN FAILURE [None]
  - TUBERCULOSIS [None]
